FAERS Safety Report 18638337 (Version 2)
Quarter: 2021Q4

REPORT INFORMATION
  Report Type: Spontaneous
  Country: US (occurrence: US)
  Receive Date: 20201218
  Receipt Date: 20211214
  Transmission Date: 20220304
  Serious: No
  Sender: FDA-Public Use
  Company Number: US-REGENERON PHARMACEUTICALS, INC.-2020-83287

PATIENT

DRUGS (12)
  1. EYLEA [Suspect]
     Active Substance: AFLIBERCEPT
     Indication: Age-related macular degeneration
     Dosage: IN RIGHT EYE, Q6W
     Route: 031
     Dates: start: 20170612
  2. EYLEA [Suspect]
     Active Substance: AFLIBERCEPT
     Dosage: BOTH EYES, Q6W
     Route: 031
     Dates: start: 20171204
  3. LANTUS [Concomitant]
     Active Substance: INSULIN GLARGINE
     Indication: Diabetes mellitus
     Dosage: 21 UNITS EVERY 24 HOURS AT NOON
  4. NOVOLOG [Concomitant]
     Active Substance: INSULIN ASPART
     Indication: Diabetes mellitus
     Dosage: INJECTING BETWEEN 7 TO 8 UNITS BEFORE EACH MEAL, AS PER THE BLOOD SUGAR LEVEL
  5. HIZENTRA                           /00025201/ [Concomitant]
     Indication: Immunodeficiency common variable
     Dosage: 44 ML, Q2W, FOR ABOUT 8 YEARS
     Route: 058
  6. MINERALS\VITAMINS [Concomitant]
     Active Substance: MINERALS\VITAMINS
     Indication: Macular degeneration
     Dosage: 2 PILLS, QD FOR 2 YEARS
  7. FOSAMAX [Concomitant]
     Active Substance: ALENDRONATE SODIUM
     Indication: Bone disorder
     Dosage: 70 MG, WEEKLY
  8. VITAMIN B12 [Concomitant]
     Active Substance: CYANOCOBALAMIN
     Indication: Vitamin B12 deficiency
     Dosage: MONTHLY
     Dates: start: 2016
  9. ATORVASTATIN [Concomitant]
     Active Substance: ATORVASTATIN
     Indication: Blood cholesterol abnormal
     Dosage: 20 MG, QD
  10. LEVOTHYROXINE [Concomitant]
     Active Substance: LEVOTHYROXINE
     Indication: Product used for unknown indication
     Dosage: 75 ?G, QD, 1 TABLET
     Route: 048
  11. VITAMIN D3                         /07503901/ [Concomitant]
     Indication: Product used for unknown indication
     Dosage: 5000 IU, QD
  12. FERGON [Concomitant]
     Active Substance: FERROUS GLUCONATE
     Indication: Mineral supplementation
     Dosage: 27 MG, QD

REACTIONS (1)
  - Orthostatic hypotension [Not Recovered/Not Resolved]

NARRATIVE: CASE EVENT DATE: 20180101
